FAERS Safety Report 22601652 (Version 1)
Quarter: 2023Q2

REPORT INFORMATION
  Report Type: Spontaneous
  Country: US (occurrence: US)
  Receive Date: 20230614
  Receipt Date: 20230614
  Transmission Date: 20230721
  Serious: No
  Sender: FDA-Public Use
  Company Number: US-FreseniusKabi-FK202308331

PATIENT
  Age: 26 Year
  Sex: Male
  Weight: 104 kg

DRUGS (1)
  1. ROCURONIUM BROMIDE [Suspect]
     Active Substance: ROCURONIUM BROMIDE
     Indication: Muscle relaxant therapy
     Dosage: PDF-11210000
     Route: 042
     Dates: start: 20230602, end: 20230602

REACTIONS (1)
  - Drug ineffective [None]
